FAERS Safety Report 19430246 (Version 1)
Quarter: 2021Q2

REPORT INFORMATION
  Report Type: Spontaneous
  Country: CN (occurrence: CN)
  Receive Date: 20210617
  Receipt Date: 20210617
  Transmission Date: 20210717
  Serious: Yes (Hospitalization)
  Sender: FDA-Public Use
  Company Number: NVSC2021CN132123

PATIENT
  Age: 78 Year
  Sex: Male
  Weight: 72 kg

DRUGS (2)
  1. ROSUVASTATIN CALCIUM. [Suspect]
     Active Substance: ROSUVASTATIN CALCIUM
     Indication: ARTERIOSCLEROSIS
     Dosage: 10 MG, QN
     Route: 048
     Dates: start: 20200731, end: 20200806
  2. LORNOXICAM [Suspect]
     Active Substance: LORNOXICAM
     Indication: ARTHRITIS
     Dosage: 8 MG, QD
     Route: 042
     Dates: start: 20200731, end: 20200806

REACTIONS (1)
  - Hepatic function abnormal [Recovering/Resolving]

NARRATIVE: CASE EVENT DATE: 20200731
